APPROVED DRUG PRODUCT: MEPRON
Active Ingredient: ATOVAQUONE
Strength: 750MG/5ML
Dosage Form/Route: SUSPENSION;ORAL
Application: N020500 | Product #001 | TE Code: AB
Applicant: GLAXOSMITHKLINE LLC
Approved: Feb 8, 1995 | RLD: Yes | RS: Yes | Type: RX